FAERS Safety Report 5384558-4 (Version None)
Quarter: 2007Q3

REPORT INFORMATION
  Report Type: 
  Country: None (occurrence: None)
  Receive Date: 20070711
  Receipt Date: 20060706
  Transmission Date: 20080115
  Serious: No
  Sender: FDA-Public Use
  Company Number: US-AMGEN-KDL182045

PATIENT
  Sex: Female

DRUGS (5)
  1. KINERET [Suspect]
     Indication: RHEUMATOID ARTHRITIS
     Route: 058
     Dates: start: 20060526
  2. PREDNISONE [Concomitant]
  3. LEVOTHROID [Concomitant]
  4. DETROL [Concomitant]
  5. LIPITOR [Concomitant]

REACTIONS (2)
  - INJECTION SITE REACTION [None]
  - ORAL HERPES [None]
